FAERS Safety Report 9846058 (Version 1)
Quarter: 2013Q4

REPORT INFORMATION
  Report Type: Spontaneous
  Country: US (occurrence: None)
  Receive Date: 20131223
  Receipt Date: 20131223
  Transmission Date: 20140711
  Serious: Yes (Other)
  Sender: FDA-Public Use
  Company Number: SYM-2013-02012

PATIENT
  Sex: Male

DRUGS (1)
  1. XENAZINE (TETRABENAZINE) [Suspect]
     Indication: HUNTINGTON^S DISEASE
     Dates: start: 201204, end: 201208

REACTIONS (2)
  - Personality change [None]
  - Drug ineffective [None]
